FAERS Safety Report 13771518 (Version 1)
Quarter: 2017Q3

REPORT INFORMATION
  Report Type: Spontaneous
  Country: US (occurrence: US)
  Receive Date: 20170720
  Receipt Date: 20170720
  Transmission Date: 20171127
  Serious: Yes (Hospitalization, Other)
  Sender: FDA-Public Use
  Company Number: US-ACCORD-051458

PATIENT
  Age: 21 Year
  Sex: Male

DRUGS (8)
  1. CARBOPLATIN. [Suspect]
     Active Substance: CARBOPLATIN
     Indication: TESTICULAR CANCER METASTATIC
     Dosage: AUC : 8
     Route: 042
  2. PACLITAXEL/PACLITAXEL LIPOSOME [Suspect]
     Active Substance: PACLITAXEL
     Indication: TESTICULAR CANCER METASTATIC
     Route: 042
  3. FLUCONAZOLE. [Concomitant]
     Active Substance: FLUCONAZOLE
     Indication: PROPHYLAXIS
     Route: 048
  4. ETOPOSIDE. [Suspect]
     Active Substance: ETOPOSIDE
     Indication: TESTICULAR CANCER METASTATIC
     Dosage: AUC:8
     Route: 042
  5. FILGRASTIM/GRANULOCYTE COLONY STIMULATING/LENOGRASTIM [Concomitant]
     Dosage: PER DAY
  6. IFOSFAMIDE. [Suspect]
     Active Substance: IFOSFAMIDE
     Indication: TESTICULAR CANCER METASTATIC
     Route: 042
  7. ACICLOVIR [Concomitant]
     Active Substance: ACYCLOVIR
     Indication: PROPHYLAXIS
     Route: 048
  8. CIPROFLOXACIN. [Concomitant]
     Active Substance: CIPROFLOXACIN
     Indication: PROPHYLAXIS
     Route: 048

REACTIONS (5)
  - Streptococcal bacteraemia [Recovered/Resolved]
  - Clostridium difficile colitis [Recovered/Resolved]
  - Sepsis [Recovered/Resolved]
  - Febrile neutropenia [Recovered/Resolved]
  - Rhabdomyolysis [Recovering/Resolving]
